FAERS Safety Report 5768772-1 (Version None)
Quarter: 2008Q2

REPORT INFORMATION
  Report Type: 
  Country: None (occurrence: None)
  Receive Date: 20080610
  Receipt Date: 20080527
  Transmission Date: 20081010
  Serious: Yes (Disabling)
  Sender: FDA-Public Use
  Company Number: E3810-01902-SPO-GB

PATIENT
  Age: 51 Year
  Sex: Female
  Weight: 71 kg

DRUGS (3)
  1. RABEPRAZOLE SODIUM [Suspect]
     Indication: GASTROOESOPHAGEAL REFLUX DISEASE
     Dosage: ORAL
     Route: 048
     Dates: start: 20070901, end: 20071001
  2. ADCAL-D3 (LEKOVIT CA) [Concomitant]
  3. PENTASA [Concomitant]

REACTIONS (7)
  - ARTHRALGIA [None]
  - FATIGUE [None]
  - HYPERHIDROSIS [None]
  - JOINT SWELLING [None]
  - LUPUS-LIKE SYNDROME [None]
  - MALAISE [None]
  - SOMNOLENCE [None]
